FAERS Safety Report 6578175-8 (Version None)
Quarter: 2010Q1

REPORT INFORMATION
  Report Type: 
  Country: None (occurrence: None)
  Receive Date: 20100211
  Receipt Date: 20100202
  Transmission Date: 20100710
  Serious: Yes (Hospitalization, Other)
  Sender: FDA-Public Use
  Company Number: GB-AMGEN-QUU390268

PATIENT
  Sex: Female

DRUGS (2)
  1. ARANESP [Suspect]
     Indication: DRUG USE FOR UNKNOWN INDICATION
     Dates: start: 20030731
  2. MYCOPHENOLIC ACID [Concomitant]
     Dates: end: 20090801

REACTIONS (5)
  - APLASIA PURE RED CELL [None]
  - CYTOMEGALOVIRUS SYNDROME [None]
  - HAEMOGLOBIN DECREASED [None]
  - RETICULOCYTE COUNT DECREASED [None]
  - TRANSPLANT FAILURE [None]
